FAERS Safety Report 8035583-6 (Version None)
Quarter: 2012Q1

REPORT INFORMATION
  Report Type: 
  Country: None (occurrence: None)
  Receive Date: 20120111
  Receipt Date: 20111228
  Transmission Date: 20120608
  Serious: Yes (Other)
  Sender: FDA-Public Use
  Company Number: JP-SANOFI-AVENTIS-2011SA085000

PATIENT
  Age: 80 Year
  Sex: Male

DRUGS (7)
  1. ASPIRIN [Concomitant]
     Route: 048
  2. FERROUS CITRATE [Concomitant]
     Route: 048
  3. PLAVIX [Concomitant]
     Route: 048
  4. ZOLPIDEM [Suspect]
     Route: 048
  5. MERISLON [Concomitant]
     Route: 048
  6. CALBLOCK [Concomitant]
     Route: 048
  7. OMEPRAZOLE [Concomitant]
     Route: 048

REACTIONS (1)
  - LOSS OF CONSCIOUSNESS [None]
